FAERS Safety Report 16703355 (Version 2)
Quarter: 2020Q3

REPORT INFORMATION
  Report Type: Spontaneous
  Country: US (occurrence: US)
  Receive Date: 20190814
  Receipt Date: 20200819
  Transmission Date: 20201102
  Serious: No
  Sender: FDA-Public Use
  Company Number: US-AEGERION PHARMACEUTICAL, INC-AEGR004212

PATIENT
  Age: 59 Year
  Sex: Female
  Weight: 67.12 kg

DRUGS (1)
  1. JUXTAPID [Suspect]
     Active Substance: LOMITAPIDE MESYLATE
     Indication: TYPE IIA HYPERLIPIDAEMIA
     Dosage: 30 MG, AT BEDTIME
     Route: 048
     Dates: start: 20131011

REACTIONS (2)
  - Concussion [Unknown]
  - Vomiting [Unknown]

NARRATIVE: CASE EVENT DATE: 201904
